FAERS Safety Report 5451535-4 (Version None)
Quarter: 2007Q3

REPORT INFORMATION
  Report Type: 
  Country: None (occurrence: None)
  Receive Date: 20070913
  Receipt Date: 20070907
  Transmission Date: 20080115
  Serious: Yes (Hospitalization)
  Sender: FDA-Public Use
  Company Number: TR-ABBOTT-07P-161-0416280-00

PATIENT
  Age: 27 Year
  Sex: Female
  Weight: 60.5 kg

DRUGS (2)
  1. REDUCTIL 15MG [Suspect]
     Indication: WEIGHT DECREASED
     Route: 048
     Dates: start: 20070901, end: 20070906
  2. FLUTICASONE PROPIONATE [Concomitant]
     Indication: RHINITIS ALLERGIC
     Route: 045

REACTIONS (2)
  - PALPITATIONS [None]
  - PANIC REACTION [None]
